FAERS Safety Report 4276506-5 (Version None)
Quarter: 2004Q1

REPORT INFORMATION
  Report Type: 
  Country: None (occurrence: None)
  Receive Date: 20040120
  Receipt Date: 20040106
  Transmission Date: 20041129
  Serious: No
  Sender: FDA-Public Use
  Company Number: 2004UW00125

PATIENT
  Age: 11 Year
  Sex: Female

DRUGS (12)
  1. FOSCAVIR [Suspect]
     Indication: HERPES VIRUS INFECTION
     Dosage: 24 MG/ML IV
     Route: 042
  2. FOSCAVIR [Suspect]
     Indication: IMMUNODEFICIENCY
     Dosage: 24 MG/ML IV
     Route: 042
  3. NEURONTIN [Concomitant]
  4. METHADONE HCL [Concomitant]
  5. COUMADIN [Concomitant]
  6. AMIKACIN [Concomitant]
  7. AMPICILLIN [Concomitant]
  8. ALDACTONE [Concomitant]
  9. POTASSIUM [Concomitant]
  10. BICARBONATE [Concomitant]
  11. CALCIUM [Concomitant]
  12. INTERMITTENT MORPHINE [Concomitant]

REACTIONS (4)
  - CONVULSION [None]
  - DEPRESSED LEVEL OF CONSCIOUSNESS [None]
  - ENCEPHALOPATHY [None]
  - PHLEBITIS [None]
